FAERS Safety Report 8440688 (Version 2)
Quarter: 2012Q4

REPORT INFORMATION
  Report Type: 
  Country: US (occurrence: US)
  Receive Date: 20120305
  Receipt Date: 20121017
  Transmission Date: 20130627
  Serious: Yes (Other)
  Sender: FDA-Public Use
  Company Number: US-ROCHE-798728

PATIENT
  Age: 14 Year
  Sex: Male
  Weight: 81.72 kg

DRUGS (2)
  1. ACCUTANE [Suspect]
     Indication: ACNE
     Route: 048
     Dates: start: 1999, end: 2001
  2. ACCUTANE [Suspect]
     Route: 065
     Dates: start: 200201, end: 200205

REACTIONS (12)
  - Crohn^s disease [Unknown]
  - Inflammatory bowel disease [Unknown]
  - Anxiety [Unknown]
  - Colitis ulcerative [Unknown]
  - Intestinal haemorrhage [Unknown]
  - Intestinal obstruction [Unknown]
  - Anal fistula [Unknown]
  - Rectal abscess [Unknown]
  - Irritable bowel syndrome [Unknown]
  - Lip dry [Unknown]
  - Back pain [Unknown]
  - Myalgia [Unknown]
